FAERS Safety Report 11723252 (Version 1)
Quarter: 2015Q4

REPORT INFORMATION
  Report Type: Spontaneous
  Country: US (occurrence: None)
  Receive Date: 20151110
  Receipt Date: 20151110
  Transmission Date: 20160304
  Serious: Yes (Disabling)
  Sender: FDA-Public Use
  Company Number: None

PATIENT

DRUGS (1)
  1. INVEGA SUSTENNA [Suspect]
     Active Substance: PALIPERIDONE PALMITATE
     Indication: INSOMNIA
     Dates: start: 201510

REACTIONS (3)
  - Dyspnoea [None]
  - Vision blurred [None]
  - Tachycardia [None]

NARRATIVE: CASE EVENT DATE: 20151018
